FAERS Safety Report 5248520-4 (Version None)
Quarter: 2007Q1

REPORT INFORMATION
  Report Type: 
  Country: None (occurrence: None)
  Receive Date: 20070222
  Receipt Date: 20070208
  Transmission Date: 20070707
  Serious: Yes (Hospitalization)
  Sender: FDA-Public Use
  Company Number: TPG2007A00122

PATIENT
  Age: 70 Year
  Sex: Female

DRUGS (6)
  1. ACTOS [Suspect]
     Indication: DIABETES MELLITUS NON-INSULIN-DEPENDENT
     Dosage: 30 MG PER ORAL
     Route: 048
     Dates: start: 20060912
  2. GLIMEPIRIDE [Concomitant]
  3. DIURETICS (DIURETICS) [Concomitant]
  4. BETA BLOCKING AGENTS (BETA BLOCKING AGENTS) [Concomitant]
  5. ANTIHYPERTENSIVES (ANTIHYPERTENSIVES) [Concomitant]
  6. RENIN-ANGIOTENSIN SYSTEM, AGENTS ACTING ON (RENIN-ANGIOTENSIN SYSTEM, [Concomitant]

REACTIONS (3)
  - BACTERIAL INFECTION [None]
  - NOSOCOMIAL INFECTION [None]
  - PNEUMONIA [None]
